FAERS Safety Report 8757622 (Version 2)
Quarter: 2012Q4

REPORT INFORMATION
  Report Type: 
  Country: DK (occurrence: DK)
  Receive Date: 20120828
  Receipt Date: 20121030
  Transmission Date: 20130627
  Serious: Yes (Other)
  Sender: FDA-Public Use
  Company Number: DK-PFIZER INC-2012159174

PATIENT
  Age: 36 Year
  Sex: Male

DRUGS (2)
  1. VENLAFAXINE HYDROCHLORIDE [Suspect]
     Dosage: 225 mg, UNK
  2. VENLAFAXINE HYDROCHLORIDE [Suspect]
     Dosage: 300 mg, UNK

REACTIONS (3)
  - Depression [Unknown]
  - Drug ineffective [Unknown]
  - Anxiety [Unknown]
